FAERS Safety Report 4618435-0 (Version None)
Quarter: 2005Q1

REPORT INFORMATION
  Report Type: 
  Country: None (occurrence: None)
  Receive Date: 20050324
  Receipt Date: 20050315
  Transmission Date: 20050727
  Serious: Yes (Life-Threatening, Disabling)
  Sender: FDA-Public Use
  Company Number: US-MERCK-0503USA02446

PATIENT
  Age: 41 Year
  Sex: Male

DRUGS (4)
  1. VIOXX [Suspect]
     Indication: MONARTHRITIS
     Route: 048
     Dates: start: 20030301, end: 20030101
  2. DOLOBID [Concomitant]
     Route: 048
  3. ULTRACET [Concomitant]
     Route: 065
  4. LORCET-HD [Concomitant]
     Route: 065

REACTIONS (4)
  - DRUG INEFFECTIVE [None]
  - HEADACHE [None]
  - HYPERTENSION [None]
  - VISION BLURRED [None]
